FAERS Safety Report 23790652 (Version 3)
Quarter: 2024Q3

REPORT INFORMATION
  Report Type: Report from Study
  Country: US (occurrence: US)
  Receive Date: 20240427
  Receipt Date: 20240926
  Transmission Date: 20241016
  Serious: Yes (Other)
  Sender: NOVARTIS
  Company Number: US-002147023-NVSC2024US088854

PATIENT
  Sex: Female

DRUGS (1)
  1. ENTRESTO [Suspect]
     Active Substance: SACUBITRIL\VALSARTAN
     Indication: Product used for unknown indication
     Dosage: 0.5 DOSAGE FORM, BID (ONE HALF TABLET OF THE ENTRESTO 24/26MG TABLETS)
     Route: 048
     Dates: start: 20230217

REACTIONS (3)
  - Crohn^s disease [Unknown]
  - Hypertension [Unknown]
  - Off label use [Unknown]
